FAERS Safety Report 5358149-5 (Version None)
Quarter: 2007Q2

REPORT INFORMATION
  Report Type: 
  Country: None (occurrence: None)
  Receive Date: 20070530
  Receipt Date: 20061129
  Transmission Date: 20071010
  Serious: Yes (Hospitalization, Other)
  Sender: FDA-Public Use
  Company Number: US200605005838

PATIENT
  Age: 48 Year
  Sex: Female
  Weight: 44.9 kg

DRUGS (5)
  1. ZYPREXA [Suspect]
     Indication: SCHIZOPHRENIA
     Dosage: 10 MG
     Dates: start: 19980201
  2. HALOPERIDOL [Concomitant]
  3. LITHIUM CARBONATE [Concomitant]
  4. BUPROPION HCL [Concomitant]
  5. FLUOXETINE [Concomitant]

REACTIONS (7)
  - BLOOD CHOLESTEROL ABNORMAL [None]
  - BLOOD TRIGLYCERIDES INCREASED [None]
  - DIABETES MELLITUS [None]
  - DIABETIC COMA [None]
  - HYPERGLYCAEMIC HYPEROSMOLAR NONKETOTIC SYNDROME [None]
  - METABOLIC DISORDER [None]
  - PANCREATITIS [None]
